FAERS Safety Report 6616181-5 (Version None)
Quarter: 2010Q1

REPORT INFORMATION
  Report Type: 
  Country: None (occurrence: None)
  Receive Date: 20100226
  Receipt Date: 20100203
  Transmission Date: 20100710
  Serious: Yes (Other)
  Sender: FDA-Public Use
  Company Number: 2010EU000582

PATIENT
  Age: 14 Year

DRUGS (1)
  1. PROTOPIC [Suspect]
     Indication: DERMATITIS ALLERGIC

REACTIONS (2)
  - ALOPECIA TOTALIS [None]
  - LYMPHADENOPATHY [None]
